FAERS Safety Report 18473011 (Version 1)
Quarter: 2020Q4

REPORT INFORMATION
  Report Type: Spontaneous
  Country: US (occurrence: US)
  Receive Date: 20201105
  Receipt Date: 20201105
  Transmission Date: 20210114
  Serious: Yes (Disabling, Other)
  Sender: FDA-Public Use
  Company Number: None

PATIENT
  Age: 71 Year
  Sex: Male
  Weight: 74.25 kg

DRUGS (11)
  1. SPIRIVA RESPIMAT [Concomitant]
     Active Substance: TIOTROPIUM BROMIDE
  2. MOTOPROLOL TARTRATE [Concomitant]
     Active Substance: METOPROLOL TARTRATE
  3. ATORVASTATIN [Concomitant]
     Active Substance: ATORVASTATIN
  4. VENTOLIN HFA [Concomitant]
     Active Substance: ALBUTEROL SULFATE
  5. SYMBICORT ER SUCCINATE [Concomitant]
  6. ASPIRIN 81MG [Concomitant]
     Active Substance: ASPIRIN
  7. BRILINTA [Suspect]
     Active Substance: TICAGRELOR
     Indication: STENT PLACEMENT
     Dosage: ??
     Route: 048
     Dates: start: 20200814
  8. CLONAZAPAM [Concomitant]
     Active Substance: CLONAZEPAM
  9. DESVENLAFAXINE. [Concomitant]
     Active Substance: DESVENLAFAXINE
  10. BRILINTA [Concomitant]
     Active Substance: TICAGRELOR
  11. QUETIAPINE. [Concomitant]
     Active Substance: QUETIAPINE

REACTIONS (5)
  - Stomatitis [None]
  - Dyspnoea exertional [None]
  - Chromaturia [None]
  - Quality of life decreased [None]
  - Fatigue [None]

NARRATIVE: CASE EVENT DATE: 20200814
